FAERS Safety Report 7413515-9 (Version None)
Quarter: 2011Q2

REPORT INFORMATION
  Report Type: 
  Country: None (occurrence: None)
  Receive Date: 20110413
  Receipt Date: 20110411
  Transmission Date: 20111010
  Serious: Yes (Other)
  Sender: FDA-Public Use
  Company Number: US-PFIZER INC-2011047957

PATIENT
  Age: 53 Year
  Sex: Female

DRUGS (2)
  1. GABAPENTIN [Suspect]
     Dosage: 900 MG/DAILY
  2. GABAPENTIN [Suspect]
     Dosage: 2400 MG/DAILY

REACTIONS (2)
  - IMPAIRED WORK ABILITY [None]
  - SOMNOLENCE [None]
